FAERS Safety Report 9162380 (Version 1)
Quarter: 2013Q1

REPORT INFORMATION
  Report Type: Spontaneous
  Country: US (occurrence: None)
  Receive Date: 20130222
  Receipt Date: 20130222
  Transmission Date: 20140127
  Serious: Yes (Other)
  Sender: FDA-Public Use
  Company Number: GB-DEXPHARM-20130031

PATIENT
  Age: 57 Year
  Sex: 0

DRUGS (1)
  1. OMEPRAZOLE [Suspect]
     Indication: DYSPEPSIA
     Dosage: STARTED ONE YEAR AGO. NOT STOPPED YET 20 MG MILLIGRAM(S) SEP. DOSAGES/INTERVAL: 1 IN 1 DAY

REACTIONS (2)
  - Mouth ulceration [None]
  - Dry mouth [None]
